FAERS Safety Report 4704956-9 (Version None)
Quarter: 2005Q2

REPORT INFORMATION
  Report Type: 
  Country: None (occurrence: None)
  Receive Date: 20050630
  Receipt Date: 20050630
  Transmission Date: 20051028
  Serious: Yes (Other)
  Sender: FDA-Public Use
  Company Number: None

PATIENT
  Sex: Male
  Weight: 92.5338 kg

DRUGS (2)
  1. KLONOPIN [Suspect]
     Indication: ANXIETY
  2. KLONOPIN [Suspect]
     Indication: PANIC ATTACK

REACTIONS (2)
  - ANXIETY [None]
  - NERVOUSNESS [None]
